FAERS Safety Report 9909083 (Version 1)
Quarter: 2014Q1

REPORT INFORMATION
  Report Type: Report from Study
  Country: US (occurrence: US)
  Receive Date: 20140219
  Receipt Date: 20140219
  Transmission Date: 20141002
  Serious: Yes (Other)
  Sender: FDA-Public Use
  Company Number: US-PFIZER INC-2014040302

PATIENT
  Age: 33 Year
  Sex: Female

DRUGS (3)
  1. GEMCITABINE HYDROCHLORIDE [Suspect]
     Indication: HODGKIN^S DISEASE
     Dosage: 2 OUT OF EVERY 3 WEEKS
  2. VINORELBINE [Concomitant]
     Indication: HODGKIN^S DISEASE
     Dosage: UNK
  3. DOXORUBICIN HYDROCHLORIDE [Concomitant]
     Indication: HODGKIN^S DISEASE
     Dosage: UNK

REACTIONS (1)
  - Thrombotic microangiopathy [Recovering/Resolving]
